FAERS Safety Report 24376050 (Version 1)
Quarter: 2024Q3

REPORT INFORMATION
  Report Type: Spontaneous
  Country: US (occurrence: None)
  Receive Date: 20240927
  Receipt Date: 20240927
  Transmission Date: 20241016
  Serious: Yes (Hospitalization)
  Sender: Public
  Company Number: None

PATIENT
  Age: 29 Year
  Sex: Female
  Weight: 54.3 kg

DRUGS (1)
  1. BENLYSTA [Suspect]
     Active Substance: BELIMUMAB
     Dosage: 200MG EVERY 7 DAYS SUBCUTANEOUS?
     Route: 058
     Dates: start: 20240827

REACTIONS (2)
  - Urticaria [None]
  - Haemoglobin decreased [None]

NARRATIVE: CASE EVENT DATE: 20240926
